FAERS Safety Report 5888789-6 (Version None)
Quarter: 2008Q3

REPORT INFORMATION
  Report Type: 
  Country: None (occurrence: None)
  Receive Date: 20080917
  Receipt Date: 20080917
  Transmission Date: 20090109
  Serious: No
  Sender: FDA-Public Use
  Company Number: None

PATIENT
  Sex: Female
  Weight: 110.91 kg

DRUGS (4)
  1. BEVACIZUMAB (RHUMAB VEGF) [Suspect]
     Dosage: 2244 MG
     Dates: end: 20080721
  2. LEUCOVORIN CALCIUM [Suspect]
     Dosage: 3456 MG
     Dates: end: 20080721
  3. ELOXATIN [Suspect]
     Dosage: 432 MG
     Dates: end: 20080721
  4. FLUOROURACIL [Suspect]
     Dosage: 16156 MG
     Dates: end: 20080721

REACTIONS (4)
  - HEPATIC LESION [None]
  - LUNG NEOPLASM [None]
  - LYMPHADENOPATHY [None]
  - PULMONARY EMBOLISM [None]
